FAERS Safety Report 8368860-X (Version None)
Quarter: 2012Q2

REPORT INFORMATION
  Report Type: 
  Country: None (occurrence: None)
  Receive Date: 20120516
  Receipt Date: 20120427
  Transmission Date: 20120825
  Serious: Yes (Death)
  Sender: FDA-Public Use
  Company Number: 2012-218

PATIENT
  Age: 61 Year
  Sex: Male

DRUGS (1)
  1. FAZACLO ODT [Suspect]
     Dosage: 900 MG, QD, ORAL
     Route: 048
     Dates: start: 20080513, end: 20120401

REACTIONS (1)
  - COLONIC OBSTRUCTION [None]
